FAERS Safety Report 5051302-X (Version None)
Quarter: 2006Q3

REPORT INFORMATION
  Report Type: 
  Country: None (occurrence: None)
  Receive Date: 20060710
  Receipt Date: 20060628
  Transmission Date: 20061208
  Serious: No
  Sender: FDA-Public Use
  Company Number: B0430059A

PATIENT
  Sex: Male

DRUGS (4)
  1. PAXIL [Suspect]
  2. LINEZOLID [Suspect]
  3. TRAZODONE HCL [Suspect]
  4. AMITRIPTYLINE (AMITRIPTYLINE) [Suspect]

REACTIONS (2)
  - DRUG INTERACTION [None]
  - DRUG TOXICITY [None]
